FAERS Safety Report 11809317 (Version 1)
Quarter: 2015Q4

REPORT INFORMATION
  Report Type: Other
  Country: GB (occurrence: GB)
  Receive Date: 20151207
  Receipt Date: 20151207
  Transmission Date: 20160305
  Serious: Yes (Other)
  Sender: FDA-Public Use
  Company Number: GB-MYLANLABS-2015M1042418

PATIENT

DRUGS (3)
  1. OMEPRAZOLE. [Suspect]
     Active Substance: OMEPRAZOLE
     Indication: GASTROOESOPHAGEAL REFLUX DISEASE
     Dosage: UNK
     Route: 048
     Dates: start: 2009, end: 2014
  2. ESOMEPRAZOLE [Suspect]
     Active Substance: ESOMEPRAZOLE
     Indication: GASTROOESOPHAGEAL REFLUX DISEASE
     Dosage: UNK
     Route: 048
     Dates: start: 2009, end: 2014
  3. LANSOPRAZOLE. [Suspect]
     Active Substance: LANSOPRAZOLE
     Indication: GASTROOESOPHAGEAL REFLUX DISEASE
     Dosage: UNK
     Route: 048
     Dates: start: 2009, end: 2014

REACTIONS (11)
  - Proctalgia [Recovered/Resolved]
  - Perianal erythema [Recovered/Resolved]
  - Acne [Recovered/Resolved]
  - Anal pruritus [Recovered/Resolved]
  - Vaginal inflammation [Recovered/Resolved]
  - Vulvovaginal pruritus [Recovered/Resolved]
  - Dermatitis contact [Not Recovered/Not Resolved]
  - Vulvovaginal pain [Recovered/Resolved]
  - Anal inflammation [Recovered/Resolved]
  - Rash [Recovered/Resolved with Sequelae]
  - Vulvovaginal erythema [Recovered/Resolved]

NARRATIVE: CASE EVENT DATE: 2010
